FAERS Safety Report 9930993 (Version 2)
Quarter: 2014Q1

REPORT INFORMATION
  Report Type: Spontaneous
  Country: AU (occurrence: AU)
  Receive Date: 20140227
  Receipt Date: 20140227
  Transmission Date: 20141002
  Serious: Yes (Other)
  Sender: FDA-Public Use
  Company Number: PHHY2014AU006031

PATIENT
  Age: 75 Year
  Sex: Male
  Weight: 91.3 kg

DRUGS (2)
  1. EXFORGE [Suspect]
     Indication: HYPERTENSION
     Dosage: 1 DF (160/5 MG), UNK
     Route: 048
     Dates: start: 20140103, end: 20140109
  2. WARFARIN SODIUM [Concomitant]
     Indication: ATRIAL FIBRILLATION
     Dosage: 5 MG, UNK
     Route: 048

REACTIONS (32)
  - Musculoskeletal stiffness [Recovering/Resolving]
  - Movement disorder [Recovering/Resolving]
  - Nervousness [Recovering/Resolving]
  - Fatigue [Recovering/Resolving]
  - Headache [Recovering/Resolving]
  - Syncope [Recovering/Resolving]
  - Myalgia [Recovering/Resolving]
  - Oedema peripheral [Recovering/Resolving]
  - Vertigo [Recovering/Resolving]
  - Dizziness [Recovering/Resolving]
  - Chest pain [Recovering/Resolving]
  - Dyspnoea [Recovering/Resolving]
  - Asthenia [Recovering/Resolving]
  - Muscular weakness [Unknown]
  - Urinary incontinence [Recovering/Resolving]
  - Feeling hot [Recovering/Resolving]
  - Depressed mood [Unknown]
  - Toxicity to various agents [Unknown]
  - Affect lability [Recovering/Resolving]
  - Emotional distress [Recovering/Resolving]
  - Discomfort [Unknown]
  - Influenza like illness [Recovering/Resolving]
  - Cough [Recovering/Resolving]
  - Anxiety [Unknown]
  - Muscle spasms [Unknown]
  - Erythema [Recovering/Resolving]
  - Arthralgia [Recovering/Resolving]
  - Photosensitivity reaction [Recovering/Resolving]
  - Tremor [Recovering/Resolving]
  - Back pain [Unknown]
  - Pain [Unknown]
  - Polyuria [Unknown]
